FAERS Safety Report 4996633-4 (Version None)
Quarter: 2006Q2

REPORT INFORMATION
  Report Type: 
  Country: None (occurrence: None)
  Receive Date: 20060509
  Receipt Date: 20060427
  Transmission Date: 20061013
  Serious: Yes (Life-Threatening, Hospitalization)
  Sender: FDA-Public Use
  Company Number: US-JNJFOC-20060500022

PATIENT
  Sex: Female
  Weight: 72.58 kg

DRUGS (3)
  1. SPORANOX [Suspect]
     Route: 048
  2. TYLENOL (CAPLET) [Concomitant]
  3. SUDAFED [Concomitant]

REACTIONS (4)
  - CARDIAC ARREST [None]
  - RESPIRATORY ARREST [None]
  - SYNCOPE [None]
  - TORSADE DE POINTES [None]
